FAERS Safety Report 13587590 (Version 1)
Quarter: 2017Q2

REPORT INFORMATION
  Report Type: Spontaneous
  Country: US (occurrence: US)
  Receive Date: 20170526
  Receipt Date: 20170526
  Transmission Date: 20170830
  Serious: Yes (Death)
  Sender: FDA-Public Use
  Company Number: None

PATIENT
  Age: 69 Year
  Sex: Male
  Weight: 148 kg

DRUGS (1)
  1. ENOXAPARIN (GENERIC) [Suspect]
     Active Substance: ENOXAPARIN
     Indication: ATRIAL FIBRILLATION
     Route: 058
     Dates: start: 20170508, end: 20170522

REACTIONS (5)
  - Haemorrhage [None]
  - Anaemia [None]
  - Anticoagulation drug level below therapeutic [None]
  - Cellulitis [None]
  - Retroperitoneal haematoma [None]

NARRATIVE: CASE EVENT DATE: 20170522
